FAERS Safety Report 11316651 (Version 1)
Quarter: 2015Q3

REPORT INFORMATION
  Report Type: Report from Study
  Country: US (occurrence: US)
  Receive Date: 20150728
  Receipt Date: 20150728
  Transmission Date: 20151125
  Serious: Yes (Hospitalization)
  Sender: FDA-Public Use
  Company Number: US-009507513-1507USA010425

PATIENT
  Age: 71 Year
  Sex: Female
  Weight: 59.2 kg

DRUGS (9)
  1. CALCIUM (UNSPECIFIED) (+) CHOLECALCIFEROL [Concomitant]
     Indication: PROPHYLAXIS
  2. ASPIRIN. [Concomitant]
     Active Substance: ASPIRIN
     Indication: PROPHYLAXIS
  3. LOSARTAN POTASSIUM. [Suspect]
     Active Substance: LOSARTAN POTASSIUM
     Indication: HYPERLIPIDAEMIA
     Dosage: UNK
     Dates: start: 2014, end: 20150609
  4. MELATONIN [Concomitant]
     Active Substance: MELATONIN
     Indication: INSOMNIA
  5. CARISOPRODOL. [Concomitant]
     Active Substance: CARISOPRODOL
     Indication: INSOMNIA
  6. CHOLECALCIFEROL [Concomitant]
     Active Substance: CHOLECALCIFEROL
     Indication: OSTEOPENIA
  7. SONATA [Concomitant]
     Active Substance: ZALEPLON
  8. NAPROXEN. [Concomitant]
     Active Substance: NAPROXEN
     Indication: TEMPOROMANDIBULAR JOINT SYNDROME
  9. ASCORBIC ACID, NIACINAMIDE, PANTHENOL, PYRIDOXINE HYDROCHLORIDE, RIBOF [Concomitant]
     Indication: ROUTINE HEALTH MAINTENANCE

REACTIONS (1)
  - Hyponatraemia [Recovering/Resolving]

NARRATIVE: CASE EVENT DATE: 20150609
